FAERS Safety Report 9494581 (Version 3)
Quarter: 2014Q2

REPORT INFORMATION
  Report Type: Other
  Country: DE (occurrence: US)
  Receive Date: 20130903
  Receipt Date: 20140409
  Transmission Date: 20141212
  Serious: Yes (Hospitalization, Other)
  Sender: FDA-Public Use
  Company Number: DE-RANBAXY-2013US-72566

PATIENT
  Sex: Male
  Weight: 70.29 kg

DRUGS (3)
  1. FLUCONAZOLE [Suspect]
     Indication: RESPIRATORY MONILIASIS
     Dosage: 100 MG, BID
     Route: 042
     Dates: start: 2013
  2. PROTONIX [Suspect]
     Indication: GASTROOESOPHAGEAL REFLUX DISEASE
     Dosage: 40 MG, UNK
     Route: 042
     Dates: start: 20130810
  3. PRILOSEC [Suspect]
     Indication: GASTROOESOPHAGEAL REFLUX DISEASE
     Dosage: 20 MG, BID
     Route: 065
     Dates: end: 20130810

REACTIONS (5)
  - Respiratory moniliasis [Unknown]
  - Respiratory failure [Unknown]
  - Bacteraemia [Unknown]
  - Fungaemia [Unknown]
  - Fungal test positive [Unknown]
